FAERS Safety Report 8828547 (Version 1)
Quarter: 2012Q4

REPORT INFORMATION
  Report Type: Report from Study
  Country: SE (occurrence: SE)
  Receive Date: 20121005
  Receipt Date: 20121005
  Transmission Date: 20130627
  Serious: Yes (Other)
  Sender: FDA-Public Use
  Company Number: SE-TEVA-362158ISR

PATIENT
  Age: 74 Year
  Sex: Female

DRUGS (22)
  1. METHOTREXATE [Suspect]
     Indication: RHEUMATOID ARTHRITIS
     Route: 048
     Dates: start: 20110523, end: 20120514
  2. ABATACEPT [Suspect]
     Indication: RHEUMATOID ARTHRITIS
  3. PLACEBO [Suspect]
     Indication: RHEUMATOID ARTHRITIS
     Dates: start: 20110523, end: 20120514
  4. PREDNISOLONE [Concomitant]
     Dates: start: 20120619
  5. METHOTREXATE [Concomitant]
     Dates: start: 20120619
  6. METFORMIN MEDA [Concomitant]
     Dates: start: 20100511
  7. MINDIAB [Concomitant]
     Dates: start: 20100909
  8. KALCIPOS-D [Concomitant]
     Dates: start: 20120619
  9. FOLACIN [Concomitant]
     Dates: start: 20110523
  10. TENORMIN [Concomitant]
     Dates: start: 20110111
  11. LOSARTAN [Concomitant]
     Dates: start: 20110111
  12. SIMVASTATIN [Concomitant]
     Dates: start: 20110111
  13. ESTRADIOL [Concomitant]
     Dates: start: 20110424
  14. LEVAXIN [Concomitant]
     Dates: start: 20100909
  15. RHINOCORT [Concomitant]
     Dates: start: 20110111
  16. ATROVENT INHALATION AEROSOL [Concomitant]
     Dates: start: 20110111
  17. SYMBICORT [Concomitant]
     Dates: start: 20100909
  18. LAKTULOS PHARMACIA [Concomitant]
     Dates: start: 20100511
  19. NAPROXEN [Concomitant]
     Dates: start: 20110512
  20. PANODIL [Concomitant]
     Dates: start: 20101111
  21. IMOVANE [Concomitant]
     Dates: start: 20110111
  22. ACETYLCYSTEINE [Concomitant]
     Dates: start: 20110111

REACTIONS (1)
  - Uterine cancer [Unknown]
